FAERS Safety Report 4360052-4 (Version None)
Quarter: 2004Q2

REPORT INFORMATION
  Report Type: 
  Country: None (occurrence: None)
  Receive Date: 20040513
  Receipt Date: 20040430
  Transmission Date: 20050107
  Serious: Yes (Other)
  Sender: FDA-Public Use
  Company Number: 200410270BNE

PATIENT
  Age: 8 Month
  Sex: Male

DRUGS (1)
  1. CANESTEN HC CREAM [Suspect]
     Indication: CANDIDA NAPPY RASH
     Dosage: BID, TOPICAL
     Route: 061
     Dates: start: 20040415, end: 20040419

REACTIONS (3)
  - CONDITION AGGRAVATED [None]
  - DERMATITIS DIAPER [None]
  - PAIN [None]
